FAERS Safety Report 4746261-0 (Version None)
Quarter: 2005Q3

REPORT INFORMATION
  Report Type: 
  Country: None (occurrence: None)
  Receive Date: 20050816
  Receipt Date: 20050729
  Transmission Date: 20060218
  Serious: Yes (Disabling, Other)
  Sender: FDA-Public Use
  Company Number: USA0506101442

PATIENT
  Age: 84 Year
  Sex: Female
  Weight: 73 kg

DRUGS (7)
  1. FORTEO [Suspect]
     Indication: OSTEOPOROSIS
     Dosage: 20 UG DAY
     Dates: start: 20050401, end: 20050624
  2. TOPROL-XL [Concomitant]
  3. METHOTREXATE [Concomitant]
  4. FOLIC ACID [Concomitant]
  5. TYLENOL [Concomitant]
  6. LIPITOR [Concomitant]
  7. ZOLOFT [Concomitant]

REACTIONS (6)
  - CHORIORETINAL DISORDER [None]
  - CONDITION AGGRAVATED [None]
  - DISEASE PROGRESSION [None]
  - MACULAR DEGENERATION [None]
  - MACULAR SCAR [None]
  - VISUAL ACUITY REDUCED [None]
